FAERS Safety Report 25488542 (Version 1)
Quarter: 2025Q2

REPORT INFORMATION
  Report Type: Spontaneous
  Country: US (occurrence: US)
  Receive Date: 20250627
  Receipt Date: 20250627
  Transmission Date: 20250716
  Serious: Yes (Hospitalization, Other)
  Sender: DIFGEN PHARMACEUTICALS LLC
  Company Number: US-Difgen-012045

PATIENT

DRUGS (3)
  1. BUPIVACAINE [Suspect]
     Active Substance: BUPIVACAINE
     Indication: Back pain
     Route: 037
     Dates: start: 201204, end: 2021
  2. HYDROMORPHONE [Suspect]
     Active Substance: HYDROMORPHONE
     Indication: Back pain
     Route: 037
     Dates: start: 201204, end: 201511
  3. FENTANYL [Suspect]
     Active Substance: FENTANYL
     Indication: Back pain
     Route: 037
     Dates: start: 201605, end: 2021

REACTIONS (5)
  - Catheter site granuloma [Unknown]
  - Cognitive disorder [Recovered/Resolved]
  - Gait disturbance [Not Recovered/Not Resolved]
  - Myelopathy [Not Recovered/Not Resolved]
  - Disease recurrence [Unknown]

NARRATIVE: CASE EVENT DATE: 20151101
